FAERS Safety Report 21546395 (Version 2)
Quarter: 2022Q4

REPORT INFORMATION
  Report Type: Spontaneous
  Country: US (occurrence: US)
  Receive Date: 20221103
  Receipt Date: 20221111
  Transmission Date: 20230113
  Serious: No
  Sender: FDA-Public Use
  Company Number: US-PFIZER INC-202201232208

PATIENT
  Age: 70 Year
  Sex: Female
  Weight: 55.79 kg

DRUGS (1)
  1. GENOTROPIN [Suspect]
     Active Substance: SOMATROPIN
     Indication: Hypothalamo-pituitary disorder
     Dosage: 4 MG, 1X/DAY (BY INJECTION)

REACTIONS (3)
  - Device difficult to use [Unknown]
  - Device use issue [Unknown]
  - Overdose [Unknown]
